FAERS Safety Report 12207769 (Version 1)
Quarter: 2016Q1

REPORT INFORMATION
  Report Type: Spontaneous
  Country: US (occurrence: US)
  Receive Date: 20160324
  Receipt Date: 20160324
  Transmission Date: 20160526
  Serious: No
  Sender: FDA-Public Use
  Company Number: US-TEVA-646033USA

PATIENT
  Sex: Female
  Weight: 99.88 kg

DRUGS (3)
  1. OTFC [Suspect]
     Active Substance: FENTANYL CITRATE
     Indication: BREAKTHROUGH PAIN
  2. OTFC [Suspect]
     Active Substance: FENTANYL CITRATE
     Indication: VERTEBRAL FORAMINAL STENOSIS
     Dosage: 1 LOZENGE FOR BREAKTHROUGH PAIN EPISODE
     Route: 065
  3. FENTANYL. [Concomitant]
     Active Substance: FENTANYL

REACTIONS (2)
  - Off label use [Not Recovered/Not Resolved]
  - Pain [Not Recovered/Not Resolved]

NARRATIVE: CASE EVENT DATE: 2015
